FAERS Safety Report 11128068 (Version 1)
Quarter: 2015Q2

REPORT INFORMATION
  Report Type: Spontaneous
  Country: BR (occurrence: BR)
  Receive Date: 20150521
  Receipt Date: 20150521
  Transmission Date: 20150821
  Serious: Yes (Other)
  Sender: FDA-Public Use
  Company Number: BR-PFIZER INC-2015166369

PATIENT
  Age: 82 Year
  Sex: Female

DRUGS (3)
  1. DIOVAN [Concomitant]
     Active Substance: VALSARTAN
     Indication: BLOOD PRESSURE
     Dosage: 1 TABLET, DAILY
     Dates: start: 2010
  2. AAS [Concomitant]
     Active Substance: ASPIRIN
     Indication: BLOOD DISORDER
     Dosage: 1 TABLET, DAILY
     Dates: start: 2012
  3. LIPITOR [Suspect]
     Active Substance: ATORVASTATIN CALCIUM
     Indication: BLOOD PRESSURE
     Dosage: 1 TABLET (40 MG), DAILY
     Route: 048
     Dates: start: 2010

REACTIONS (2)
  - Product use issue [Not Recovered/Not Resolved]
  - Infarction [Unknown]

NARRATIVE: CASE EVENT DATE: 2010
